FAERS Safety Report 16841341 (Version 1)
Quarter: 2019Q3

REPORT INFORMATION
  Report Type: Report from Study
  Country: MX (occurrence: MX)
  Receive Date: 20190923
  Receipt Date: 20190923
  Transmission Date: 20191005
  Serious: Yes (Life-Threatening, Hospitalization)
  Sender: FDA-Public Use
  Company Number: PHHY2019MX220446

PATIENT
  Age: 68 Year
  Sex: Male
  Weight: 100 kg

DRUGS (2)
  1. EXFORGE HCT [Suspect]
     Active Substance: AMLODIPINE BESYLATE\HYDROCHLOROTHIAZIDE\VALSARTAN
     Indication: HYPERTENSION
     Dosage: 1 DF (5 MG), QD
     Route: 048
  2. ISORBID [Concomitant]
     Active Substance: ISOSORBIDE DINITRATE
     Indication: VASODILATATION
     Dosage: 1 DF, QID
     Route: 048
     Dates: start: 201908

REACTIONS (2)
  - Tachycardia [Recovered/Resolved]
  - Feeling abnormal [Unknown]

NARRATIVE: CASE EVENT DATE: 201908
